FAERS Safety Report 4273253-0 (Version None)
Quarter: 2004Q1

REPORT INFORMATION
  Report Type: 
  Country: None (occurrence: None)
  Receive Date: 20040116
  Receipt Date: 20040109
  Transmission Date: 20041129
  Serious: Yes (Hospitalization)
  Sender: FDA-Public Use
  Company Number: US-ROCHE-355561

PATIENT
  Age: 67 Year
  Sex: Male

DRUGS (9)
  1. INTERFERON ALFA-2A [Suspect]
     Indication: METASTATIC RENAL CELL CARCINOMA
     Route: 058
     Dates: start: 20031011
  2. CAPECITABINE [Suspect]
     Indication: METASTATIC RENAL CELL CARCINOMA
     Dosage: 2000 MG/M2/DAY FOR DAYS 1-14 AND 22-36
     Route: 048
     Dates: start: 20031011
  3. HYDROCHLOROTHIAZIDE [Concomitant]
     Dates: start: 20031022
  4. ALUPENT [Concomitant]
     Dosage: TAKEN PRN
     Route: 055
     Dates: start: 20031022
  5. ATENOLOL [Concomitant]
     Dates: start: 20031003
  6. PRINIVIL [Concomitant]
     Dates: start: 20030816
  7. SYNTHROID [Concomitant]
     Dates: start: 20031126
  8. MULTI-VITAMIN [Concomitant]
     Dates: start: 20011001
  9. FOLIC ACID [Concomitant]
     Dates: start: 20011001

REACTIONS (4)
  - BLOOD SODIUM DECREASED [None]
  - HAEMOGLOBIN DECREASED [None]
  - PNEUMONIA [None]
  - URINARY TRACT INFECTION [None]
